FAERS Safety Report 7178875-5 (Version None)
Quarter: 2010Q4

REPORT INFORMATION
  Report Type: 
  Country: None (occurrence: None)
  Receive Date: 20101217
  Receipt Date: 20101217
  Transmission Date: 20110411
  Serious: Yes (Hospitalization)
  Sender: FDA-Public Use
  Company Number: None

PATIENT
  Sex: Male
  Weight: 61.2 kg

DRUGS (6)
  1. ARICEPT [Suspect]
     Indication: DEMENTIA
     Dosage: ONE PILL DAILY PO
     Route: 048
     Dates: start: 20101210, end: 20101211
  2. NAMENDA [Concomitant]
  3. PAXIL [Concomitant]
  4. LISINOPRIL [Concomitant]
  5. XALATAN [Concomitant]
  6. SODIUM CHLORIDE [Concomitant]

REACTIONS (3)
  - DROOLING [None]
  - UNRESPONSIVE TO STIMULI [None]
  - VOMITING [None]
